FAERS Safety Report 25633704 (Version 2)
Quarter: 2025Q3

REPORT INFORMATION
  Report Type: Spontaneous
  Country: GB (occurrence: GB)
  Receive Date: 20250801
  Receipt Date: 20250919
  Transmission Date: 20251021
  Serious: Yes (Hospitalization)
  Sender: INSUD PHARMA
  Company Number: GB-MLMSERVICE-20250717-PI579499-00312-1

PATIENT
  Age: 52 Year
  Sex: Male

DRUGS (3)
  1. TESTOSTERONE [Suspect]
     Active Substance: TESTOSTERONE
     Indication: Product used for unknown indication
     Route: 030
  2. CABOTEGRAVIR [Suspect]
     Active Substance: CABOTEGRAVIR
     Indication: HIV infection
     Route: 030
  3. RILPIVIRINE [Suspect]
     Active Substance: RILPIVIRINE
     Indication: HIV infection
     Route: 030

REACTIONS (4)
  - Injection site necrosis [Recovered/Resolved]
  - Skin mass [Recovered/Resolved]
  - Injection site haemorrhage [Recovered/Resolved]
  - Intentional product misuse [Recovered/Resolved]
